FAERS Safety Report 9044604 (Version 1)
Quarter: 2013Q1

REPORT INFORMATION
  Report Type: Report from Study
  Country: KR (occurrence: KR)
  Receive Date: 20130130
  Receipt Date: 20130130
  Transmission Date: 20140127
  Serious: Yes (Life-Threatening)
  Sender: FDA-Public Use
  Company Number: KR-NAPPMUNDI-GBR-2012-0012954

PATIENT
  Sex: Female

DRUGS (4)
  1. OXY CR [Suspect]
     Indication: CANCER PAIN
     Dosage: 20 MG, DAILY
     Route: 048
     Dates: start: 20110106
  2. OXY IR [Suspect]
     Indication: CANCER PAIN
     Dosage: 5 MG, DAILY
     Route: 048
     Dates: start: 20110106
  3. LACTULOSE [Concomitant]
     Dosage: 30 ML, DAILY
     Dates: start: 20110110
  4. MAGNESIUM OXIDE [Concomitant]
     Dosage: 1500 MG, DAILY
     Dates: start: 20110110

REACTIONS (1)
  - Urinary retention [Unknown]
